FAERS Safety Report 10397199 (Version 2)
Quarter: 2014Q4

REPORT INFORMATION
  Report Type: Spontaneous
  Country: JP (occurrence: JP)
  Receive Date: 20140820
  Receipt Date: 20141030
  Transmission Date: 20150528
  Serious: Yes (Other)
  Sender: FDA-Public Use
  Company Number: PHHY2013JP161313

PATIENT
  Age: 77 Year
  Sex: Male

DRUGS (2)
  1. TASIGNA [Suspect]
     Active Substance: NILOTINIB
     Indication: CHRONIC MYELOID LEUKAEMIA
     Dosage: 600 MG, QD
     Route: 065
     Dates: start: 20120416
  2. TASIGNA [Suspect]
     Active Substance: NILOTINIB
     Dosage: 600 MG, OT
     Route: 065
     Dates: start: 20140401

REACTIONS (1)
  - Intestinal obstruction [Recovering/Resolving]
